FAERS Safety Report 8236994-6 (Version None)
Quarter: 2012Q1

REPORT INFORMATION
  Report Type: 
  Country: None (occurrence: None)
  Receive Date: 20120327
  Receipt Date: 20120321
  Transmission Date: 20120608
  Serious: Yes (Life-Threatening, Other)
  Sender: FDA-Public Use
  Company Number: PHHY2011JP48807

PATIENT
  Sex: Female
  Weight: 2.5 kg

DRUGS (5)
  1. CEFAZOLIN [Concomitant]
     Indication: INFECTION PROPHYLAXIS
     Dosage: 240 MG, UNK
     Route: 042
     Dates: start: 20100630, end: 20100712
  2. FAMOTIDINE [Concomitant]
     Indication: PROPHYLAXIS
     Dosage: 2 MG, UNK
     Route: 042
     Dates: start: 20100630, end: 20100713
  3. SANDIMMUNE [Suspect]
     Indication: ACUTE HEPATIC FAILURE
     Dosage: 0.5 MG/KG, UNK
     Dates: start: 20100630, end: 20100701
  4. LASIX [Concomitant]
     Dosage: 3 MG, UNK
     Route: 042
     Dates: start: 20100701
  5. SOLU-MEDROL [Concomitant]
     Indication: ACUTE HEPATIC FAILURE
     Dosage: 50 MG, UNK
     Route: 042
     Dates: start: 20100629, end: 20100709

REACTIONS (9)
  - HAEMOGLOBIN DECREASED [None]
  - URINE OUTPUT DECREASED [None]
  - NEPHROTIC SYNDROME [None]
  - IMMUNOSUPPRESSANT DRUG LEVEL INCREASED [None]
  - RENAL FAILURE ACUTE [None]
  - WHITE BLOOD CELL COUNT DECREASED [None]
  - PLATELET COUNT DECREASED [None]
  - HAEMATOCRIT DECREASED [None]
  - RED BLOOD CELL COUNT DECREASED [None]
